FAERS Safety Report 9087197 (Version 18)
Quarter: 2016Q4

REPORT INFORMATION
  Report Type: Report from Study
  Country: CA (occurrence: CA)
  Receive Date: 20130201
  Receipt Date: 20161230
  Transmission Date: 20170207
  Serious: Yes (Other)
  Sender: FDA-Public Use
  Company Number: CA-ROCHE-1137422

PATIENT
  Age: 52 Year
  Sex: Female
  Weight: 111 kg

DRUGS (5)
  1. ACTEMRA [Suspect]
     Active Substance: TOCILIZUMAB
     Route: 042
     Dates: start: 20140709
  2. ACTEMRA [Suspect]
     Active Substance: TOCILIZUMAB
     Indication: RHEUMATOID ARTHRITIS
     Route: 042
     Dates: start: 20120223
  3. LYRICA [Concomitant]
     Active Substance: PREGABALIN
     Route: 065
  4. CYMBALTA [Concomitant]
     Active Substance: DULOXETINE HYDROCHLORIDE
  5. OLMETEC [Concomitant]
     Active Substance: OLMESARTAN MEDOXOMIL

REACTIONS (19)
  - Blood pressure abnormal [Unknown]
  - Weight decreased [Unknown]
  - Blood pressure increased [Unknown]
  - Pharyngitis streptococcal [Not Recovered/Not Resolved]
  - Weight decreased [Not Recovered/Not Resolved]
  - Nasal disorder [Unknown]
  - Weight increased [Recovered/Resolved]
  - Tendon rupture [Not Recovered/Not Resolved]
  - Blood pressure increased [Unknown]
  - Hypotension [Unknown]
  - Meniscus injury [Recovered/Resolved]
  - Urinary tract infection [Unknown]
  - Upper respiratory tract infection [Not Recovered/Not Resolved]
  - Osteoarthritis [Recovered/Resolved]
  - Heart rate increased [Not Recovered/Not Resolved]
  - Weight increased [Recovering/Resolving]
  - Malaise [Unknown]
  - Sinusitis [Unknown]
  - Swelling face [Not Recovered/Not Resolved]

NARRATIVE: CASE EVENT DATE: 20120815
